FAERS Safety Report 19179618 (Version 1)
Quarter: 2021Q2

REPORT INFORMATION
  Report Type: Spontaneous
  Country: US (occurrence: US)
  Receive Date: 20210423
  Receipt Date: 20210423
  Transmission Date: 20210717
  Serious: Yes (Other)
  Sender: FDA-Public Use
  Company Number: None

PATIENT
  Sex: Female

DRUGS (1)
  1. ESTRADIOL CREAM 0.1% [Suspect]
     Active Substance: ESTRADIOL

REACTIONS (2)
  - Vulvovaginal mycotic infection [None]
  - Histamine abnormal [None]
